FAERS Safety Report 4745190-6 (Version None)
Quarter: 2005Q3

REPORT INFORMATION
  Report Type: 
  Country: None (occurrence: None)
  Receive Date: 20050815
  Receipt Date: 20050804
  Transmission Date: 20060218
  Serious: Yes (Other)
  Sender: FDA-Public Use
  Company Number: PHBS2005BE11283

PATIENT
  Sex: Male

DRUGS (5)
  1. GLEEVEC [Suspect]
     Indication: CHRONIC MYELOID LEUKAEMIA
     Dosage: 400 MG/D
     Route: 048
  2. ASPIRIN [Concomitant]
  3. OMEGA 3 [Concomitant]
  4. TAMBOCOR [Concomitant]
  5. CORDARONE [Concomitant]

REACTIONS (1)
  - ALVEOLITIS [None]
